FAERS Safety Report 6443851-4 (Version None)
Quarter: 2009Q4

REPORT INFORMATION
  Report Type: 
  Country: None (occurrence: None)
  Receive Date: 20091113
  Receipt Date: 20091030
  Transmission Date: 20100525
  Serious: Yes (Hospitalization)
  Sender: FDA-Public Use
  Company Number: 2009AL007074

PATIENT
  Age: 71 Year
  Sex: Female

DRUGS (12)
  1. DIAZEPAM TAB [Suspect]
     Dosage: 5 MG;RECTAL
     Route: 054
  2. TRAMADOL HYDROCHLORIDE [Suspect]
     Dosage: PO
     Route: 048
  3. OXYCODONE HCL [Suspect]
     Dosage: PO
     Route: 048
  4. VENLAFAXINE HCL [Suspect]
     Dosage: PO
     Route: 048
  5. VENLAFAXINE HCL [Suspect]
     Dosage: PO
     Route: 048
  6. LEVETIRACETAM [Suspect]
     Dosage: PO
     Route: 048
  7. VESICARE [Concomitant]
  8. SIMVASTATIN [Concomitant]
  9. CALCIGRAN [Concomitant]
  10. IMODIUM [Concomitant]
  11. SELEXID [Concomitant]
  12. ALBYL-E [Concomitant]

REACTIONS (5)
  - AFFECT LABILITY [None]
  - CONFUSIONAL STATE [None]
  - DELIRIUM [None]
  - DISORIENTATION [None]
  - URINARY TRACT INFECTION [None]
